FAERS Safety Report 9793173 (Version 3)
Quarter: 2014Q1

REPORT INFORMATION
  Report Type: Spontaneous
  Country: SE (occurrence: SE)
  Receive Date: 20140102
  Receipt Date: 20140324
  Transmission Date: 20141002
  Serious: Yes (Hospitalization, Other)
  Sender: FDA-Public Use
  Company Number: SE-PFIZER INC-2013373595

PATIENT
  Age: 90 Year
  Sex: Male

DRUGS (13)
  1. DALACIN [Suspect]
     Dosage: 150 MG, 4X/DAY
     Route: 048
     Dates: start: 20131103, end: 20131105
  2. WARAN [Suspect]
     Indication: ATRIAL FIBRILLATION
     Dosage: UNK
  3. GLYTRIN [Concomitant]
     Dosage: 0.4 MG, UNK
  4. FURIX [Concomitant]
     Dosage: 40 MG, UNK
  5. METOPROLOL [Concomitant]
     Dosage: 100 MG, UNK
  6. RAMIPRIL [Concomitant]
     Dosage: 2.5 MG, UNK
  7. LEVAXIN [Concomitant]
     Dosage: 75 UG, UNK
  8. OXYNORM [Concomitant]
     Dosage: 5 MG, UNK
  9. PANODIL [Concomitant]
     Dosage: 500 MG, UNK
  10. ANDOLEX [Concomitant]
     Dosage: 1.5 MG/ML, UNK
  11. XYLOCAINE VISCOUS [Concomitant]
     Dosage: 20 MG/ML, UNK
  12. FLUCONAZOLE [Concomitant]
     Dosage: 50 MG, DAILY
     Route: 048
  13. KALEROID [Concomitant]
     Dosage: 750 MG, UNK

REACTIONS (2)
  - Muscle haemorrhage [Recovered/Resolved]
  - Stevens-Johnson syndrome [Recovered/Resolved]
